FAERS Safety Report 4816867-9 (Version None)
Quarter: 2005Q4

REPORT INFORMATION
  Report Type: 
  Country: None (occurrence: None)
  Receive Date: 20051031
  Receipt Date: 20051031
  Transmission Date: 20060501
  Serious: Yes (Hospitalization)
  Sender: FDA-Public Use
  Company Number: None

PATIENT
  Age: 60 Year
  Sex: Male

DRUGS (11)
  1. FUROSEMIDE [Suspect]
     Indication: FLUID RETENTION
     Dosage: 40 MG BID
     Dates: start: 20021201
  2. FUROSEMIDE [Suspect]
     Indication: HYPERTENSION
     Dosage: 40 MG BID
     Dates: start: 20021201
  3. NPH INSULIN [Suspect]
     Indication: DIABETES MELLITUS INSULIN-DEPENDENT
     Dosage: 75 U Q AM + 65 U Q PM
     Dates: start: 20031201
  4. ZITHROMAX [Concomitant]
  5. METOCLOPRAMIDE [Concomitant]
  6. PEPTO BISMOL [Concomitant]
  7. PERCOCET [Concomitant]
  8. ZOCOR [Concomitant]
  9. DSS [Concomitant]
  10. ISOSORBIDE [Concomitant]
  11. DIAZEPAM [Concomitant]

REACTIONS (3)
  - HYPOGLYCAEMIA [None]
  - MENTAL STATUS CHANGES [None]
  - RENAL FAILURE [None]
